FAERS Safety Report 4335485-2 (Version None)
Quarter: 2004Q1

REPORT INFORMATION
  Report Type: 
  Country: None (occurrence: None)
  Receive Date: 20040330
  Receipt Date: 20040115
  Transmission Date: 20041129
  Serious: No
  Sender: FDA-Public Use
  Company Number: 27568

PATIENT
  Age: 58 Year
  Sex: Female
  Weight: 62.1428 kg

DRUGS (4)
  1. TRAVATAN [Suspect]
     Indication: GLAUCOMA
     Dosage: 1 GTT OU HS OPHT
     Route: 047
     Dates: start: 20030801
  2. UNIVASC [Concomitant]
  3. ESTRADIOL [Concomitant]
  4. RESTASIS [Concomitant]

REACTIONS (2)
  - EYE PRURITUS [None]
  - SKIN TIGHTNESS [None]
